FAERS Safety Report 5765045-8 (Version None)
Quarter: 2008Q2

REPORT INFORMATION
  Report Type: 
  Country: None (occurrence: None)
  Receive Date: 20080611
  Receipt Date: 20080602
  Transmission Date: 20081010
  Serious: Yes (Other)
  Sender: FDA-Public Use
  Company Number: US-ASTRAZENECA-2008UW11388

PATIENT
  Sex: Female

DRUGS (3)
  1. ACCOLATE [Suspect]
     Route: 064
  2. BETA2-AGONISTS [Concomitant]
     Route: 064
  3. CORTICOSTEROIDS [Concomitant]
     Route: 064

REACTIONS (1)
  - HIP DYSPLASIA [None]
